FAERS Safety Report 6453942-X (Version None)
Quarter: 2009Q4

REPORT INFORMATION
  Report Type: 
  Country: None (occurrence: None)
  Receive Date: 20091124
  Receipt Date: 20091116
  Transmission Date: 20100525
  Serious: Yes (Other)
  Sender: FDA-Public Use
  Company Number: US-BAYER-200937113NA

PATIENT
  Age: 36 Year
  Sex: Female

DRUGS (2)
  1. BETASERON [Suspect]
     Indication: MULTIPLE SCLEROSIS
     Dosage: TOTAL DAILY DOSE: 8 MIU
     Route: 058
     Dates: start: 20090918, end: 20090101
  2. BETASERON [Suspect]
     Dosage: TOTAL DAILY DOSE: 6 MIU
     Route: 058
     Dates: start: 20090101, end: 20091026

REACTIONS (5)
  - ABASIA [None]
  - DIARRHOEA [None]
  - MONOPLEGIA [None]
  - MUSCULAR WEAKNESS [None]
  - PARAESTHESIA [None]
